FAERS Safety Report 8662987 (Version 2)
Quarter: 2012Q4

REPORT INFORMATION
  Report Type: 
  Country: FR (occurrence: FR)
  Receive Date: 20120712
  Receipt Date: 20121025
  Transmission Date: 20130627
  Serious: Yes (Hospitalization)
  Sender: FDA-Public Use
  Company Number: FR-BAYER-2012-069188

PATIENT
  Age: 51 Year
  Sex: Male

DRUGS (2)
  1. CIFLOX [Suspect]
     Dosage: UNK
     Route: 048
     Dates: start: 20120610, end: 20120629
  2. CLAMOXYL [Suspect]
     Dosage: UNK
     Route: 048
     Dates: start: 20120610, end: 20120629

REACTIONS (2)
  - Vascular purpura [Recovered/Resolved]
  - Leukocytoclastic vasculitis [Recovered/Resolved]
